FAERS Safety Report 7953750-4 (Version None)
Quarter: 2011Q4

REPORT INFORMATION
  Report Type: 
  Country: None (occurrence: None)
  Receive Date: 20111202
  Receipt Date: 20111124
  Transmission Date: 20120403
  Serious: Yes (Other)
  Sender: FDA-Public Use
  Company Number: GB-JNJFOC-20111111123

PATIENT
  Age: 14 Year
  Sex: Male

DRUGS (2)
  1. CONCERTA [Suspect]
     Indication: ATTENTION DEFICIT/HYPERACTIVITY DISORDER
     Route: 048
     Dates: start: 20110101
  2. CONCERTA [Suspect]
     Route: 048
     Dates: end: 20111001

REACTIONS (8)
  - DRUG INEFFECTIVE [None]
  - SOCIAL AVOIDANT BEHAVIOUR [None]
  - DEPRESSED MOOD [None]
  - DEPRESSION [None]
  - OBSESSIVE THOUGHTS [None]
  - DECREASED APPETITE [None]
  - WEIGHT DECREASED [None]
  - SUICIDAL IDEATION [None]
